FAERS Safety Report 23038449 (Version 1)
Quarter: 2023Q4

REPORT INFORMATION
  Report Type: Spontaneous
  Country: CN (occurrence: None)
  Receive Date: 20231006
  Receipt Date: 20231006
  Transmission Date: 20240110
  Serious: Yes (Other)
  Sender: FDA-Public Use
  Company Number: 2023A224129

PATIENT
  Age: 74 Year
  Sex: Female
  Weight: 49 kg

DRUGS (1)
  1. IMFINZI [Suspect]
     Active Substance: DURVALUMAB
     Indication: Non-small cell lung cancer stage III
     Dosage: 500.0MG UNKNOWN
     Route: 042
     Dates: start: 20220802

REACTIONS (1)
  - Hepatic function abnormal [Unknown]
